FAERS Safety Report 22253850 (Version 1)
Quarter: 2023Q2

REPORT INFORMATION
  Report Type: Report from Study
  Country: IT (occurrence: IT)
  Receive Date: 20230426
  Receipt Date: 20230426
  Transmission Date: 20230722
  Serious: Yes (Other)
  Sender: FDA-Public Use
  Company Number: None

PATIENT
  Age: 48 Year
  Sex: Female

DRUGS (3)
  1. LEUPROLIDE ACETATE [Suspect]
     Active Substance: LEUPROLIDE ACETATE
     Indication: Uterine leiomyoma
     Dosage: 1 UNIT OF MEASURE: DOSING UNITFREQUENCY OF ADMINISTRATION: TOTAL ROUTE OF
     Route: 030
  2. LEUPROLIDE ACETATE [Suspect]
     Active Substance: LEUPROLIDE ACETATE
     Dosage: 1UNIT OF MEASURE: DOSING UNITFREQUENCY OF ADMINISTRATION: TOTALROUTE OF
     Route: 030
  3. LEUPROLIDE ACETATE [Suspect]
     Active Substance: LEUPROLIDE ACETATE
     Dosage: DOSAGE: 1?UNIT OF MEASURE: DOSING UNIT?FREQUENCY OF ADMINISTRATION: TOTAL?ROUTE OF ADMINISTRATION...
     Route: 030

REACTIONS (3)
  - Intermenstrual bleeding [Recovering/Resolving]
  - Pelvic pain [Recovering/Resolving]
  - Abdominal pain [Recovering/Resolving]

NARRATIVE: CASE EVENT DATE: 20220908
